FAERS Safety Report 5250656-9 (Version None)
Quarter: 2007Q1

REPORT INFORMATION
  Report Type: 
  Country: None (occurrence: None)
  Receive Date: 20070228
  Receipt Date: 20060613
  Transmission Date: 20070707
  Serious: No
  Sender: FDA-Public Use
  Company Number: US-GLAXOSMITHKLINE-A0608810A

PATIENT
  Age: 51 Year
  Sex: Female

DRUGS (4)
  1. LAMICTAL [Suspect]
     Indication: DEPRESSION
     Dosage: 150MG PER DAY
     Route: 048
     Dates: start: 20051011
  2. CLONAZEPAM [Concomitant]
  3. VICODIN [Concomitant]
  4. LEXAPRO [Concomitant]

REACTIONS (3)
  - COUGH [None]
  - PAIN [None]
  - RESPIRATORY TRACT INFECTION [None]
